FAERS Safety Report 5340650-1 (Version None)
Quarter: 2007Q2

REPORT INFORMATION
  Report Type: 
  Country: None (occurrence: None)
  Receive Date: 20070405
  Receipt Date: 20070103
  Transmission Date: 20071010
  Serious: Yes (Other)
  Sender: FDA-Public Use
  Company Number: US200701000641

PATIENT
  Sex: Female

DRUGS (6)
  1. CYMBALTA [Suspect]
     Dates: start: 20060501, end: 20061219
  2. PROTONIX [Concomitant]
  3. ZELNORM /USA/ (TEGASEROD) [Concomitant]
  4. ZESTRIL [Concomitant]
  5. LOPRESSOR [Concomitant]
  6. KLONOPIN [Concomitant]

REACTIONS (2)
  - BALANCE DISORDER [None]
  - SYNCOPE [None]
